FAERS Safety Report 5208397-X (Version None)
Quarter: 2006Q4

REPORT INFORMATION
  Report Type: 
  Country: None (occurrence: None)
  Receive Date: 20061026
  Receipt Date: 20060913
  Transmission Date: 20070319
  Serious: No
  Sender: FDA-Public Use
  Company Number: 2006098010

PATIENT
  Age: 67 Year
  Sex: Male

DRUGS (5)
  1. LYRICA [Suspect]
     Indication: DIABETIC NEUROPATHY
     Dosage: 225 MG (75 MG,3 IN 1 D)
     Dates: start: 20060219
  2. LYRICA [Suspect]
     Indication: NEUROPATHY PERIPHERAL
     Dosage: 225 MG (75 MG,3 IN 1 D)
     Dates: start: 20060219
  3. FLEXERIL [Concomitant]
  4. BENICAR [Concomitant]
  5. AVANDIA [Concomitant]

REACTIONS (3)
  - DYSPHONIA [None]
  - PHARYNGOLARYNGEAL PAIN [None]
  - TONGUE DISORDER [None]
